FAERS Safety Report 4413536-4 (Version None)
Quarter: 2004Q2

REPORT INFORMATION
  Report Type: 
  Country: None (occurrence: None)
  Receive Date: 20040630
  Receipt Date: 20040303
  Transmission Date: 20050107
  Serious: No
  Sender: FDA-Public Use
  Company Number: 04P-163-0252680-00

PATIENT
  Age: 67 Year
  Sex: Female
  Weight: 63.9572 kg

DRUGS (11)
  1. HUMIRA [Suspect]
     Indication: RHEUMATOID ARTHRITIS
     Dosage: 40 MG, 1 IN 2 WK, SUBCUTANEOUS
     Route: 058
     Dates: start: 20040116, end: 20040303
  2. NABUMETONE [Concomitant]
  3. SULFASALAZINE [Concomitant]
  4. METHOTREXATE [Concomitant]
  5. PREDNISONE TAB [Concomitant]
  6. LEVOTHYROXINE SODIUM [Concomitant]
  7. FUROSEMIDE [Concomitant]
  8. ENALAPRIL MALEATE [Concomitant]
  9. ATORVASTATIN CALCIUM [Concomitant]
  10. CONJUGATED ESTROGEN [Concomitant]
  11. ALENDRONATE SODIUM [Concomitant]

REACTIONS (3)
  - COUGH [None]
  - DYSPNOEA [None]
  - RESPIRATORY TRACT CONGESTION [None]
